FAERS Safety Report 17157945 (Version 1)
Quarter: 2019Q4

REPORT INFORMATION
  Report Type: Spontaneous
  Country: IT (occurrence: IT)
  Receive Date: 20191216
  Receipt Date: 20191216
  Transmission Date: 20200122
  Serious: Yes (Hospitalization, Other)
  Sender: FDA-Public Use
  Company Number: IT-009507513-1912ITA005184

PATIENT
  Age: 54 Year
  Sex: Female

DRUGS (1)
  1. KEYTRUDA [Suspect]
     Active Substance: PEMBROLIZUMAB
     Indication: THYMOMA
     Dosage: UNK

REACTIONS (7)
  - Haemodynamic instability [Unknown]
  - Myositis [Unknown]
  - Myasthenia gravis crisis [Unknown]
  - Respiratory failure [Unknown]
  - Arthrotomy [Unknown]
  - Polymyositis [Unknown]
  - Off label use [Unknown]

NARRATIVE: CASE EVENT DATE: 2019
